FAERS Safety Report 5669164-6 (Version None)
Quarter: 2008Q1

REPORT INFORMATION
  Report Type: 
  Country: None (occurrence: None)
  Receive Date: 20080317
  Receipt Date: 20080305
  Transmission Date: 20080703
  Serious: No
  Sender: FDA-Public Use
  Company Number: FR-AVENTIS-200714150FR

PATIENT
  Age: 34 Year
  Sex: Female
  Weight: 63 kg

DRUGS (3)
  1. ARAVA [Suspect]
     Indication: SAPHO SYNDROME
     Route: 048
     Dates: start: 20070701, end: 20070801
  2. DOLIPRANE [Concomitant]
     Route: 048
  3. CORTICOSTEROIDS [Concomitant]
     Indication: SAPHO SYNDROME
     Route: 048

REACTIONS (3)
  - DRUG EXPOSURE DURING PREGNANCY [None]
  - MEDICATION ERROR [None]
  - NO ADVERSE EVENT [None]
